FAERS Safety Report 6927848-3 (Version None)
Quarter: 2010Q3

REPORT INFORMATION
  Report Type: 
  Country: None (occurrence: None)
  Receive Date: 20100817
  Receipt Date: 20100805
  Transmission Date: 20110219
  Serious: Yes (Other)
  Sender: FDA-Public Use
  Company Number: US-PFIZER INC-2008004945

PATIENT
  Sex: Female
  Weight: 62.132 kg

DRUGS (4)
  1. CHANTIX [Suspect]
     Indication: SMOKING CESSATION THERAPY
     Dosage: UNK
     Route: 048
     Dates: start: 20080101
  2. CHANTIX [Suspect]
     Dosage: 0.5 MG, 1X/DAY
     Route: 048
     Dates: start: 20100201, end: 20100601
  3. CHANTIX [Suspect]
     Dosage: UNK
     Route: 048
     Dates: start: 20100730
  4. EFFEXOR [Concomitant]
     Indication: DEPRESSION
     Dosage: UNK

REACTIONS (9)
  - AGITATION [None]
  - BALANCE DISORDER [None]
  - DEPRESSION [None]
  - FEAR [None]
  - HEADACHE [None]
  - NIGHTMARE [None]
  - POOR QUALITY SLEEP [None]
  - SUICIDAL IDEATION [None]
  - TREMOR [None]
